FAERS Safety Report 7502642-3 (Version None)
Quarter: 2011Q2

REPORT INFORMATION
  Report Type: 
  Country: None (occurrence: None)
  Receive Date: 20110525
  Receipt Date: 20110512
  Transmission Date: 20111010
  Serious: Yes (Other)
  Sender: FDA-Public Use
  Company Number: PHHY2011US40908

PATIENT
  Sex: Female

DRUGS (2)
  1. CLOZARIL [Suspect]
  2. IRON SUPPLEMENTS [Concomitant]

REACTIONS (5)
  - PERNICIOUS ANAEMIA [None]
  - RED BLOOD CELL COUNT DECREASED [None]
  - BLOOD SODIUM DECREASED [None]
  - BLOOD UREA INCREASED [None]
  - HAEMOGLOBIN DECREASED [None]
